FAERS Safety Report 9166694 (Version 3)
Quarter: 2013Q3

REPORT INFORMATION
  Report Type: Report from Study
  Country: GB (occurrence: GB)
  Receive Date: 20130315
  Receipt Date: 20130705
  Transmission Date: 20140515
  Serious: Yes (Hospitalization)
  Sender: FDA-Public Use
  Company Number: GB-MERCK-1303GBR005522

PATIENT
  Age: 58 Year
  Sex: Female

DRUGS (2)
  1. VORINOSTAT [Suspect]
     Indication: PLASMA CELL MYELOMA
     Dosage: 200 MG, UNK
     Route: 048
     Dates: start: 20120820, end: 201302
  2. LENALIDOMIDE [Suspect]
     Indication: PLASMA CELL MYELOMA
     Dosage: 5 MG, (DAYS 1,21)
     Route: 048
     Dates: start: 20110905, end: 20130302

REACTIONS (1)
  - Pancreatitis [Recovering/Resolving]
